FAERS Safety Report 6304899-3 (Version None)
Quarter: 2009Q3

REPORT INFORMATION
  Report Type: 
  Country: None (occurrence: None)
  Receive Date: 20090811
  Receipt Date: 20090731
  Transmission Date: 20100115
  Serious: Yes (Other)
  Sender: FDA-Public Use
  Company Number: US-ELI_LILLY_AND_COMPANY-US200906005476

PATIENT
  Age: 12 Year
  Sex: Male
  Weight: 77.098 kg

DRUGS (3)
  1. STRATTERA [Suspect]
     Indication: ATTENTION DEFICIT/HYPERACTIVITY DISORDER
     Dosage: UNK, UNKNOWN
     Route: 065
  2. STRATTERA [Suspect]
     Dosage: 80 MG, DAILY (1/D)
     Route: 065
  3. CONCERTA [Concomitant]
     Dosage: UNK, UNKNOWN
     Route: 065
     Dates: end: 20080701

REACTIONS (3)
  - DRUG WITHDRAWAL SYNDROME [None]
  - DYSPNOEA EXERTIONAL [None]
  - TACHYCARDIA [None]
